FAERS Safety Report 8340203-7 (Version None)
Quarter: 2012Q2

REPORT INFORMATION
  Report Type: 
  Country: None (occurrence: None)
  Receive Date: 20120502
  Receipt Date: 20120502
  Transmission Date: 20120825
  Serious: Yes (Death)
  Sender: FDA-Public Use
  Company Number: None

PATIENT
  Age: 56 Year
  Sex: Female
  Weight: 82.1011 kg

DRUGS (1)
  1. EXJADE [Suspect]
     Dosage: 2500MG,DAILY, PO
     Route: 048
     Dates: start: 20091201, end: 20120325

REACTIONS (2)
  - POST PROCEDURAL SEPSIS [None]
  - BONE MARROW TRANSPLANT [None]
